FAERS Safety Report 8765755 (Version 1)
Quarter: 2012Q4

REPORT INFORMATION
  Report Type: 
  Country: US (occurrence: US)
  Receive Date: 20120903
  Receipt Date: 20120903
  Transmission Date: 20130627
  Serious: No
  Sender: FDA-Public Use
  Company Number: US-PFIZER INC-2012213942

PATIENT
  Age: 64 Year
  Sex: Female
  Weight: 45.35 kg

DRUGS (2)
  1. PREMARIN [Suspect]
     Indication: BLOOD OESTROGEN DECREASED
     Dosage: UNK, 3X/week
  2. ESTRADIOL [Suspect]
     Indication: BLOOD OESTROGEN DECREASED
     Dosage: 5 mg, 1x/day
     Dates: start: 20111128, end: 20120828

REACTIONS (2)
  - Drug ineffective [Unknown]
  - Product quality issue [Unknown]
